FAERS Safety Report 16709985 (Version 3)
Quarter: 2019Q3

REPORT INFORMATION
  Report Type: Spontaneous
  Country: US (occurrence: US)
  Receive Date: 20190816
  Receipt Date: 20190904
  Transmission Date: 20191004
  Serious: Yes (Hospitalization, Other)
  Sender: FDA-Public Use
  Company Number: US-PFIZER INC-2019347164

PATIENT
  Age: 79 Year
  Sex: Female
  Weight: 53.7 kg

DRUGS (1)
  1. LATANOPROST. [Suspect]
     Active Substance: LATANOPROST
     Indication: GLAUCOMA
     Dosage: 2.5 MG, 2X/DAY (NIGHT TIME)
     Route: 047
     Dates: start: 2009

REACTIONS (4)
  - Cataract [Not Recovered/Not Resolved]
  - Off label use [Unknown]
  - Eye irritation [Not Recovered/Not Resolved]
  - Product use issue [Unknown]

NARRATIVE: CASE EVENT DATE: 2009
